FAERS Safety Report 9475697 (Version 1)
Quarter: 2013Q3

REPORT INFORMATION
  Report Type: Spontaneous
  Country: US (occurrence: None)
  Receive Date: 20130821
  Receipt Date: 20130821
  Transmission Date: 20140515
  Serious: Yes (Hospitalization)
  Sender: FDA-Public Use
  Company Number: AUR-APL-2013-06814

PATIENT
  Age: 75 Year
  Sex: Male
  Weight: 90.7 kg

DRUGS (4)
  1. LISINOPRIL+ HYDROCHLOROTHIAZIDE [Suspect]
     Indication: HYPERTENSION
     Dates: start: 2013
  2. AMLODIPINE (AMLODIPINE) [Suspect]
     Indication: HYPERTENSION
  3. LUMIGAN (BIMATOPROST) [Concomitant]
  4. CARTEOLOL (CARTEOLOL) [Concomitant]

REACTIONS (7)
  - Lip swelling [None]
  - Oedema mouth [None]
  - Local swelling [None]
  - Musculoskeletal stiffness [None]
  - Joint stiffness [None]
  - Joint stiffness [None]
  - Musculoskeletal stiffness [None]
